FAERS Safety Report 26093049 (Version 1)
Quarter: 2025Q4

REPORT INFORMATION
  Report Type: Spontaneous
  Country: EU (occurrence: EU)
  Receive Date: 20251126
  Receipt Date: 20251126
  Transmission Date: 20260117
  Serious: Yes (Hospitalization)
  Sender: PURDUE
  Company Number: EU-PURDUE-USA-2025-0322388

PATIENT
  Age: 85 Year
  Sex: Female

DRUGS (1)
  1. MORPHINE SULFATE [Suspect]
     Active Substance: MORPHINE SULFATE
     Indication: Product used for unknown indication
     Dosage: UNK
     Route: 048

REACTIONS (2)
  - Suicide attempt [Recovered/Resolved]
  - Drug use disorder [Unknown]

NARRATIVE: CASE EVENT DATE: 20251023
